FAERS Safety Report 5391161-9 (Version None)
Quarter: 2007Q3

REPORT INFORMATION
  Report Type: 
  Country: None (occurrence: None)
  Receive Date: 20070719
  Receipt Date: 20070711
  Transmission Date: 20080115
  Serious: Yes (Other)
  Sender: FDA-Public Use
  Company Number: PHBS2007FI09314

PATIENT
  Age: 48 Year
  Sex: Female

DRUGS (3)
  1. LESCOL [Suspect]
     Dosage: 80 MG/D
     Route: 065
     Dates: start: 20070101
  2. BURANA [Concomitant]
     Dates: start: 20061201
  3. ZANIDIP [Concomitant]
     Indication: HYPERTENSION

REACTIONS (1)
  - GASTRIC ULCER [None]
